FAERS Safety Report 6802184-4 (Version None)
Quarter: 2010Q2

REPORT INFORMATION
  Report Type: 
  Country: None (occurrence: None)
  Receive Date: 20100629
  Receipt Date: 20091122
  Transmission Date: 20101027
  Serious: Yes (Other)
  Sender: FDA-Public Use
  Company Number: US-PFIZER INC-2005041344

PATIENT
  Sex: Male
  Weight: 113.38 kg

DRUGS (6)
  1. VIAGRA [Suspect]
     Indication: ERECTILE DYSFUNCTION
     Dosage: 25 MG, AS NEEDED
     Route: 048
     Dates: start: 20050101, end: 20050101
  2. VIAGRA [Suspect]
     Dosage: 100 MG, AS NEEDED
     Dates: start: 20080101, end: 20080101
  3. VIAGRA [Suspect]
     Dosage: 25 MG, UNK
     Dates: start: 20090101
  4. VIAGRA [Suspect]
     Dosage: 100 MG, UNK
     Dates: start: 20090201
  5. VIAGRA [Suspect]
     Dosage: 50 MG, AS NEEDED
     Dates: start: 20080101, end: 20091117
  6. PIROXICAM [Concomitant]
     Route: 048

REACTIONS (9)
  - CHEST PAIN [None]
  - DYSPNOEA [None]
  - ERECTILE DYSFUNCTION [None]
  - HEADACHE [None]
  - HEART RATE INCREASED [None]
  - HYPERTENSION [None]
  - MIGRAINE [None]
  - MUSCULOSKELETAL STIFFNESS [None]
  - VISION BLURRED [None]
